FAERS Safety Report 12421494 (Version 1)
Quarter: 2016Q2

REPORT INFORMATION
  Report Type: Spontaneous
  Country: US (occurrence: US)
  Receive Date: 20160531
  Receipt Date: 20160531
  Transmission Date: 20160815
  Serious: Yes (Hospitalization)
  Sender: FDA-Public Use
  Company Number: US-CELGENEUS-USA-2016056410

PATIENT
  Age: 82 Year
  Sex: Male

DRUGS (5)
  1. REVLIMID [Suspect]
     Active Substance: LENALIDOMIDE
     Route: 048
     Dates: start: 201107
  2. REVLIMID [Suspect]
     Active Substance: LENALIDOMIDE
     Route: 048
     Dates: start: 201602
  3. REVLIMID [Suspect]
     Active Substance: LENALIDOMIDE
     Route: 048
     Dates: start: 201312
  4. REVLIMID [Suspect]
     Active Substance: LENALIDOMIDE
     Indication: PLASMA CELL MYELOMA
     Route: 048
     Dates: start: 20100408
  5. REVLIMID [Suspect]
     Active Substance: LENALIDOMIDE
     Dosage: 15-10MG
     Route: 048
     Dates: start: 201502

REACTIONS (1)
  - Viral infection [Recovered/Resolved]

NARRATIVE: CASE EVENT DATE: 20160503
